FAERS Safety Report 24238466 (Version 1)
Quarter: 2024Q3

REPORT INFORMATION
  Report Type: Spontaneous
  Country: US (occurrence: None)
  Receive Date: 20240821
  Receipt Date: 20240821
  Transmission Date: 20241017
  Serious: Yes (Life-Threatening, Hospitalization, Disabling)
  Sender: Public
  Company Number: None

PATIENT
  Age: 74 Year
  Sex: Female
  Weight: 56.25 kg

DRUGS (11)
  1. KEYTRUDA [Suspect]
     Active Substance: PEMBROLIZUMAB
     Indication: Lung neoplasm malignant
     Dates: start: 20230828, end: 20240102
  2. TORSEMIDE [Concomitant]
     Active Substance: TORSEMIDE
  3. spronolactone [Concomitant]
  4. PREDNISONE [Concomitant]
  5. AXITINIB [Concomitant]
     Active Substance: AXITINIB
  6. POTASSIUM [Concomitant]
  7. Mepron [Concomitant]
  8. CALCIUM [Concomitant]
  9. VITA D3 [Concomitant]
  10. K-2 [Concomitant]
  11. MAGNESIUM [Concomitant]

REACTIONS (10)
  - Hypophagia [None]
  - Abdominal pain upper [None]
  - Nausea [None]
  - Weight decreased [None]
  - Fluid retention [None]
  - Drug ineffective [None]
  - Pulmonary thrombosis [None]
  - Chylothorax [None]
  - Capillary leak syndrome [None]
  - Device leakage [None]

NARRATIVE: CASE EVENT DATE: 20231228
